FAERS Safety Report 4921249-5 (Version None)
Quarter: 2006Q1

REPORT INFORMATION
  Report Type: 
  Country: None (occurrence: None)
  Receive Date: 20060222
  Receipt Date: 20060222
  Transmission Date: 20060701
  Serious: Yes (Hospitalization)
  Sender: FDA-Public Use
  Company Number: None

PATIENT
  Sex: Male

DRUGS (13)
  1. PROMETHAZINE [Suspect]
     Indication: ABDOMINAL PAIN
     Dosage: 25 MG ONCE  IV
     Route: 042
     Dates: start: 20051116, end: 20051116
  2. AMIODARONE [Concomitant]
  3. ASPIRIN [Concomitant]
  4. CETYLPYRIDINIUM CHLORIDE LOZENGES [Concomitant]
  5. DOCUSATE [Concomitant]
  6. FINASTERIDE [Concomitant]
  7. GLYBURIDE [Concomitant]
  8. INSULIN [Concomitant]
  9. METOPROLOL [Concomitant]
  10. OMEPRAZOLE [Concomitant]
  11. SIMVASTATIN [Concomitant]
  12. TRAZODONE [Concomitant]
  13. WARFARI [Concomitant]

REACTIONS (2)
  - LETHARGY [None]
  - LOSS OF CONSCIOUSNESS [None]
